FAERS Safety Report 17860551 (Version 1)
Quarter: 2020Q2

REPORT INFORMATION
  Report Type: Spontaneous
  Country: US (occurrence: US)
  Receive Date: 20200604
  Receipt Date: 20200604
  Transmission Date: 20200714
  Serious: Yes (Hospitalization, Other)
  Sender: FDA-Public Use
  Company Number: US-TEVA-2020-US-1243136

PATIENT
  Sex: Female

DRUGS (24)
  1. CALTRATE 600 PLUS D3 [Concomitant]
  2. GABAPENTIN 100 MG CAPSULE [Concomitant]
  3. CLOPIDOGREL 75 MG TABLET [Concomitant]
  4. LITHIUM CARBONATE 300 MG CAPSULE, [Concomitant]
  5. ASPIRIN EC 81 MG TABLET DR [Concomitant]
  6. HYDROCODONE-ACETAMINOPHEN [Concomitant]
     Active Substance: ACETAMINOPHEN\HYDROCODONE
  7. SIMVASTATIN 10 MG TABLET [Concomitant]
     Active Substance: SIMVASTATIN
  8. CLONAZEPAM 0.5 MG TABLET [Concomitant]
     Active Substance: CLONAZEPAM
  9. AUSTEDO [Suspect]
     Active Substance: DEUTETRABENAZINE
     Indication: TARDIVE DYSKINESIA
     Dosage: 30 MILLIGRAM DAILY;
     Route: 048
  10. NITROGLYCERIN 400MCG/SPR SPARY [Concomitant]
  11. AUSTEDO [Suspect]
     Active Substance: DEUTETRABENAZINE
     Route: 048
     Dates: start: 202004
  12. VITAMIN B12 2500 MCG TABLET [Concomitant]
  13. TOPIRAMATE 100 MG TABLET [Concomitant]
     Active Substance: TOPIRAMATE
  14. BENZTROPINE MESYLATE 1 MG TABLET [Concomitant]
     Active Substance: BENZTROPINE MESYLATE
  15. LORAZEPAM 0.5 MG TABLET [Concomitant]
     Active Substance: LORAZEPAM
  16. DICYCLOMINE HCL 10 MG [Concomitant]
  17. BENZTROPINE MESYLATE 0.5 MG TABLET [Concomitant]
  18. AUSTEDO [Suspect]
     Active Substance: DEUTETRABENAZINE
     Route: 048
  19. NITROGLYCERIN 0.3 MG TAB SUBL [Concomitant]
  20. SEROQUEL 300 MG TABLET [Concomitant]
  21. LEVOTHYROXINE SODIUM 100 MCG TABLET [Concomitant]
  22. BIOTIN 1 MG TABLET [Concomitant]
  23. CARBIDOPA-LEVODOPA [Concomitant]
     Active Substance: CARBIDOPA\LEVODOPA
  24. BUTALBITAL W/CAFFEINE W/CODEINE W/PARACETAMOL [Concomitant]
     Active Substance: ACETAMINOPHEN\BUTALBITAL\CAFFEINE\CODEINE PHOSPHATE

REACTIONS (3)
  - Dehydration [Unknown]
  - Chest pain [Unknown]
  - Diarrhoea [Unknown]
